FAERS Safety Report 8421580-5 (Version None)
Quarter: 2012Q2

REPORT INFORMATION
  Report Type: 
  Country: None (occurrence: None)
  Receive Date: 20120608
  Receipt Date: 20120605
  Transmission Date: 20120825
  Serious: Yes (Hospitalization)
  Sender: FDA-Public Use
  Company Number: CL-SANOFI-AVENTIS-2011SA068239

PATIENT
  Age: 63 Year
  Sex: Male
  Weight: 93 kg

DRUGS (22)
  1. ASPIRIN [Suspect]
     Indication: ACUTE CORONARY SYNDROME
     Route: 048
  2. BERODUAL [Concomitant]
     Dates: start: 20110929, end: 20110929
  3. SPIRONOLACTONE [Concomitant]
     Dates: start: 20110930
  4. NITROGLYCERIN [Concomitant]
     Dates: start: 20111006, end: 20111006
  5. NEO-SINTROM [Concomitant]
     Route: 041
     Dates: start: 20110928, end: 20110928
  6. FRAGMIN [Concomitant]
     Route: 058
     Dates: start: 20111007, end: 20111011
  7. NITROGLYCERIN [Concomitant]
     Dosage: DOSE:10 MICROGRAM(S)/MILLILITRE
     Dates: start: 20110928, end: 20110929
  8. BLINDED THERAPY [Suspect]
     Indication: ACUTE CORONARY SYNDROME
     Route: 042
     Dates: start: 20110929, end: 20110929
  9. FRAGMIN [Concomitant]
     Route: 058
     Dates: start: 20111014, end: 20111016
  10. FAMOTIDINE [Concomitant]
     Dates: start: 20110930
  11. CLONAZEPAM [Concomitant]
     Dates: start: 20110928, end: 20110928
  12. BERODUAL [Concomitant]
     Dosage: DOSE:4 PUFF(S)
     Dates: start: 20111001
  13. VERAPAMIL [Concomitant]
     Dates: start: 20110929, end: 20110929
  14. ATORVASTATIN CALCIUM [Concomitant]
     Dates: start: 20110928
  15. ENALAPRIL MALEATE [Concomitant]
     Dates: start: 20110930
  16. NEO-SINTROM [Concomitant]
     Route: 041
     Dates: start: 20110929, end: 20110930
  17. NEO-SINTROM [Concomitant]
     Route: 048
     Dates: start: 20111006, end: 20111010
  18. FRAGMIN [Concomitant]
     Route: 058
     Dates: start: 20110930, end: 20111005
  19. NITROGLYCERIN [Concomitant]
     Dates: start: 20110929, end: 20110929
  20. PLAVIX [Suspect]
     Indication: ACUTE CORONARY SYNDROME
     Route: 048
  21. NEO-SINTROM [Concomitant]
     Route: 048
     Dates: start: 20111009, end: 20111009
  22. BISOPROLOL FUMARATE [Concomitant]
     Dates: start: 20111003

REACTIONS (1)
  - VASCULAR PSEUDOANEURYSM [None]
